FAERS Safety Report 23003972 (Version 2)
Quarter: 2023Q4

REPORT INFORMATION
  Report Type: Spontaneous
  Country: IT (occurrence: IT)
  Receive Date: 20230928
  Receipt Date: 20231009
  Transmission Date: 20240110
  Serious: Yes (Death, Hospitalization)
  Sender: FDA-Public Use
  Company Number: IT-TEVA-2023-IT-2929897

PATIENT
  Age: 7 Decade
  Sex: Female

DRUGS (6)
  1. CARBOPLATIN [Suspect]
     Active Substance: CARBOPLATIN
     Indication: Endometrial adenocarcinoma
     Route: 065
  2. PACLITAXEL [Suspect]
     Active Substance: PACLITAXEL
     Indication: Endometrial adenocarcinoma
     Route: 065
  3. DOXORUBICIN HYDROCHLORIDE [Suspect]
     Active Substance: DOXORUBICIN HYDROCHLORIDE
     Indication: Endometrial adenocarcinoma
     Dosage: TOTAL SIX CYCLE
     Route: 065
  4. PEMBROLIZUMAB [Suspect]
     Active Substance: PEMBROLIZUMAB
     Indication: Endometrial adenocarcinoma
     Dosage: EVERY 21 DAYS; THE TREATMENT WAS TEMPORARILY WITHDRAWN AND THEN RESTARTED IN JANUARY 2021. AGAIN ...
     Route: 065
     Dates: start: 202006, end: 202106
  5. LENVATINIB [Suspect]
     Active Substance: LENVATINIB
     Indication: Endometrial adenocarcinoma
     Dosage: 20 MILLIGRAM DAILY; THE TREATMENT WAS TEMPORARILY WITHDRAWN AND THEN RESTARTED IN JANUARY 2021. AGAI
     Route: 048
     Dates: start: 202006, end: 202106
  6. CISPLATIN [Concomitant]
     Active Substance: CISPLATIN
     Indication: Endometrial adenocarcinoma
     Dosage: FOR FIVE CYCLES
     Route: 065
     Dates: start: 201809, end: 201810

REACTIONS (4)
  - Drug ineffective [Fatal]
  - Pulmonary toxicity [Unknown]
  - Acute respiratory failure [Unknown]
  - Pneumothorax [Unknown]
